FAERS Safety Report 16076884 (Version 1)
Quarter: 2019Q1

REPORT INFORMATION
  Report Type: Spontaneous
  Country: PT (occurrence: PT)
  Receive Date: 20190315
  Receipt Date: 20190315
  Transmission Date: 20190418
  Serious: Yes (Disabling)
  Sender: FDA-Public Use
  Company Number: PT-TEVA-2019-PT-1023642

PATIENT
  Age: 15 Year
  Sex: Male
  Weight: 70 kg

DRUGS (2)
  1. ?CIDO IBANDR?NICO RATIOPHARM [Suspect]
     Active Substance: IBANDRONATE SODIUM
     Indication: STRESS FRACTURE
     Route: 048
     Dates: start: 20190218
  2. COLECALCIFEROL [Concomitant]
     Active Substance: CHOLECALCIFEROL
     Indication: PRODUCT USED FOR UNKNOWN INDICATION
     Route: 065

REACTIONS (8)
  - Back pain [Recovering/Resolving]
  - Disability [None]
  - Product use in unapproved indication [Unknown]
  - Influenza like illness [Recovering/Resolving]
  - Gait disturbance [Recovering/Resolving]
  - Injury [None]
  - Pain [Recovering/Resolving]
  - Movement disorder [Recovering/Resolving]

NARRATIVE: CASE EVENT DATE: 20190218
